FAERS Safety Report 8104273-3 (Version None)
Quarter: 2012Q1

REPORT INFORMATION
  Report Type: 
  Country: None (occurrence: None)
  Receive Date: 20120130
  Receipt Date: 20120123
  Transmission Date: 20120608
  Serious: Yes (Other)
  Sender: FDA-Public Use
  Company Number: US-BAYER-2012-008425

PATIENT
  Age: 62 Year
  Sex: Male

DRUGS (3)
  1. ALEVE (CAPLET) [Suspect]
  2. ALEVE (CAPLET) [Suspect]
     Indication: RHEUMATOID ARTHRITIS
  3. ALEVE (CAPLET) [Suspect]
     Indication: PROCEDURAL PAIN

REACTIONS (2)
  - RHEUMATOID ARTHRITIS [None]
  - PROCEDURAL PAIN [None]
